FAERS Safety Report 6317532-1 (Version None)
Quarter: 2009Q3

REPORT INFORMATION
  Report Type: 
  Country: None (occurrence: None)
  Receive Date: 20090820
  Receipt Date: 20090820
  Transmission Date: 20100115
  Serious: Yes (Other)
  Sender: FDA-Public Use
  Company Number: None

PATIENT
  Age: 51 Year
  Sex: Female
  Weight: 66.6788 kg

DRUGS (12)
  1. SUMATRIPTAN SUCCINATE [Suspect]
     Indication: MIGRAINE
     Dosage: 100MG BID, PRN PO (047)
     Route: 048
     Dates: start: 20080201, end: 20080501
  2. SOMA [Concomitant]
  3. PRILOSEC [Concomitant]
  4. CELEXA [Concomitant]
  5. FLONASE [Concomitant]
  6. NAME BRAND IMITREX [Concomitant]
  7. ALLEGRA [Concomitant]
  8. COMPAZINE [Concomitant]
  9. BACLOFEN [Concomitant]
  10. ENDOCET [Concomitant]
  11. LORAZEPAM [Concomitant]
  12. AMBIEN [Concomitant]

REACTIONS (1)
  - NO ADVERSE EVENT [None]
